FAERS Safety Report 21713113 (Version 1)
Quarter: 2022Q4

REPORT INFORMATION
  Report Type: Spontaneous
  Country: US (occurrence: None)
  Receive Date: 20221208
  Receipt Date: 20221208
  Transmission Date: 20230112
  Serious: Yes (Hospitalization)
  Sender: FDA-Public Use
  Company Number: None

PATIENT
  Age: 69 Year
  Sex: Male
  Weight: 55 kg

DRUGS (1)
  1. ERTAPENEM [Suspect]
     Active Substance: ERTAPENEM
     Indication: Osteomyelitis
     Dosage: 1 GM EVERY DAY IV?
     Route: 042
     Dates: start: 20220706, end: 20220712

REACTIONS (9)
  - Mental status changes [None]
  - Seizure [None]
  - Unresponsive to stimuli [None]
  - Tongue biting [None]
  - Tongue haemorrhage [None]
  - Tonic clonic movements [None]
  - Hypophosphataemia [None]
  - Hypomagnesaemia [None]
  - COVID-19 [None]

NARRATIVE: CASE EVENT DATE: 20220712
